FAERS Safety Report 6409487-6 (Version None)
Quarter: 2009Q4

REPORT INFORMATION
  Report Type: 
  Country: None (occurrence: None)
  Receive Date: 20091014
  Receipt Date: 20091009
  Transmission Date: 20100525
  Serious: No
  Sender: FDA-Public Use
  Company Number: 2009020486

PATIENT
  Sex: Male

DRUGS (1)
  1. VIVAGLOBIN [Suspect]
     Dosage: (7.36 G EVERY 7 DAYS SUBCUTANEOUS)
     Route: 058
     Dates: start: 20061001

REACTIONS (1)
  - FALSE POSITIVE LABORATORY RESULT [None]
